FAERS Safety Report 17649233 (Version 2)
Quarter: 2020Q4

REPORT INFORMATION
  Report Type: Spontaneous
  Country: JP (occurrence: JP)
  Receive Date: 20200409
  Receipt Date: 20201210
  Transmission Date: 20210113
  Serious: Yes (Hospitalization)
  Sender: FDA-Public Use
  Company Number: JP-AMGEN-JPNSP2020043727

PATIENT
  Age: 75 Year
  Sex: Female

DRUGS (1)
  1. NESP [Suspect]
     Active Substance: DARBEPOETIN ALFA
     Indication: NEPHROGENIC ANAEMIA
     Dosage: 40 MICROGRAM, QWK
     Route: 010

REACTIONS (2)
  - Drug ineffective [Unknown]
  - Haematemesis [Recovered/Resolved]

NARRATIVE: CASE EVENT DATE: 20200316
